FAERS Safety Report 8871048 (Version 1)
Quarter: 2012Q4

REPORT INFORMATION
  Report Type: Spontaneous
  Country: US (occurrence: None)
  Receive Date: 20121025
  Receipt Date: 20121025
  Transmission Date: 20130627
  Serious: Yes (Life-Threatening, Other)
  Sender: FDA-Public Use
  Company Number: LEVE20120012

PATIENT
  Age: 20 Year
  Sex: Male

DRUGS (3)
  1. LEVETIRACETAM [Suspect]
     Indication: PRODUCT USED FOR UNKNOWN INDICATION
     Route: 048
  2. DOXEPIN [Suspect]
     Indication: PRODUCT USED FOR UNKNOWN INDICATION
  3. CITALOPRAM [Suspect]
     Indication: PRODUCT USED FOR UNKNOWN INDICATION

REACTIONS (8)
  - Unresponsive to stimuli [None]
  - Grand mal convulsion [None]
  - Blood pressure decreased [None]
  - Heart rate increased [None]
  - Electrocardiogram QRS complex prolonged [None]
  - Cardiac arrest [None]
  - Bradycardia [None]
  - Anticonvulsant drug level above therapeutic [None]
